FAERS Safety Report 25123959 (Version 1)
Quarter: 2025Q1

REPORT INFORMATION
  Report Type: Spontaneous
  Country: ES (occurrence: ES)
  Receive Date: 20250326
  Receipt Date: 20250326
  Transmission Date: 20250408
  Serious: Yes (Life-Threatening, Other)
  Sender: B BRAUN
  Company Number: ES-B.Braun Medical Inc.-2173345

PATIENT
  Age: 55 Year
  Sex: Male

DRUGS (2)
  1. DEXTROSE\LIDOCAINE HYDROCHLORIDE [Suspect]
     Active Substance: DEXTROSE\LIDOCAINE HYDROCHLORIDE
     Indication: Local anaesthesia
     Dates: start: 20250221, end: 20250221
  2. MIDAZOLAM [Suspect]
     Active Substance: MIDAZOLAM

REACTIONS (5)
  - Clonic convulsion [Recovering/Resolving]
  - Oxygen saturation decreased [Recovering/Resolving]
  - Psychomotor hyperactivity [Recovering/Resolving]
  - Dysarthria [Recovering/Resolving]
  - Malaise [Recovering/Resolving]
